FAERS Safety Report 19042551 (Version 2)
Quarter: 2021Q1

REPORT INFORMATION
  Report Type: Spontaneous
  Country: GB (occurrence: GB)
  Receive Date: 20210323
  Receipt Date: 20210325
  Transmission Date: 20210420
  Serious: Yes (Other)
  Sender: FDA-Public Use
  Company Number: GB-PFIZER INC-9505445

PATIENT
  Sex: Male

DRUGS (4)
  1. LUSTRAL [Suspect]
     Active Substance: SERTRALINE HYDROCHLORIDE
     Indication: DEPRESSION
     Dosage: 200 MG, DAILY
     Route: 064
     Dates: start: 1994
  2. LUSTRAL [Suspect]
     Active Substance: SERTRALINE HYDROCHLORIDE
     Dosage: 200 MG, DAILY
     Route: 063
     Dates: end: 19950411
  3. THIORIDAZINE [Concomitant]
     Active Substance: THIORIDAZINE
     Dosage: UNK
     Route: 064
     Dates: end: 199507
  4. LITHIUM. [Concomitant]
     Active Substance: LITHIUM
     Dosage: UNK
     Route: 064
     Dates: end: 199507

REACTIONS (10)
  - Maternal exposure during pregnancy [Unknown]
  - Drug dependence [Unknown]
  - Drug withdrawal syndrome neonatal [Recovered/Resolved]
  - Poor feeding infant [Recovered/Resolved]
  - Exposure via breast milk [Unknown]
  - Restlessness [Recovered/Resolved]
  - Neonatal disorder [Recovered/Resolved]
  - Hyperreflexia [Recovered/Resolved]
  - Insomnia [Recovered/Resolved]
  - Agitation neonatal [Recovered/Resolved]
